FAERS Safety Report 22342814 (Version 1)
Quarter: 2023Q2

REPORT INFORMATION
  Report Type: Report from Study
  Country: ES (occurrence: ES)
  Receive Date: 20230519
  Receipt Date: 20230519
  Transmission Date: 20230722
  Serious: Yes (Death, Other)
  Sender: FDA-Public Use
  Company Number: ES-JNJFOC-20230537016

PATIENT

DRUGS (1)
  1. IMBRUVICA [Suspect]
     Active Substance: IBRUTINIB
     Indication: Chronic lymphocytic leukaemia
     Route: 048

REACTIONS (15)
  - Death [Fatal]
  - Musculoskeletal disorder [Fatal]
  - Arrhythmia [Fatal]
  - Haematotoxicity [Fatal]
  - Skin disorder [Fatal]
  - Neutropenia [Fatal]
  - Chronic lymphocytic leukaemia [Fatal]
  - Thrombocytopenia [Fatal]
  - Haemorrhage [Fatal]
  - Atrial fibrillation [Fatal]
  - Palpitations [Unknown]
  - Infection [Fatal]
  - Diarrhoea [Unknown]
  - Hypertension [Unknown]
  - Toxicity to various agents [Fatal]
